FAERS Safety Report 6908891-7 (Version None)
Quarter: 2010Q3

REPORT INFORMATION
  Report Type: 
  Country: None (occurrence: None)
  Receive Date: 20100805
  Receipt Date: 20100729
  Transmission Date: 20110219
  Serious: Yes (Death, Hospitalization, Other)
  Sender: FDA-Public Use
  Company Number: US-AMGEN-KDC402333

PATIENT
  Age: 63 Year
  Sex: Female

DRUGS (9)
  1. NEULASTA [Suspect]
     Indication: BREAST CANCER
     Route: 058
     Dates: start: 20090918, end: 20091107
  2. DOXORUBICIN HCL [Suspect]
     Indication: BREAST CANCER
     Route: 042
     Dates: start: 20090918, end: 20091106
  3. CYCLOPHOSPHAMIDE [Suspect]
     Indication: BREAST CANCER
     Route: 042
     Dates: start: 20090918, end: 20091106
  4. PACLITAXEL [Suspect]
     Indication: BREAST CANCER
     Route: 042
     Dates: start: 20090918
  5. BEVACIZUMAB [Suspect]
     Indication: BREAST CANCER
     Route: 042
     Dates: start: 20090918, end: 20091106
  6. METOPROLOL [Concomitant]
  7. XANAX [Concomitant]
  8. LOMOTIL [Concomitant]
  9. ZOFRAN [Concomitant]

REACTIONS (4)
  - CLOSTRIDIAL INFECTION [None]
  - COLITIS [None]
  - DEHYDRATION [None]
  - PYREXIA [None]
